FAERS Safety Report 6217070-0 (Version None)
Quarter: 2009Q2

REPORT INFORMATION
  Report Type: 
  Country: None (occurrence: None)
  Receive Date: 20090606
  Receipt Date: 20090526
  Transmission Date: 20091009
  Serious: Yes (Other)
  Sender: FDA-Public Use
  Company Number: GB-PFIZER INC-2009218534

PATIENT

DRUGS (1)
  1. CELSENTRI [Suspect]
     Dosage: UNK

REACTIONS (1)
  - ABORTION SPONTANEOUS [None]
